FAERS Safety Report 7611036-1 (Version None)
Quarter: 2011Q3

REPORT INFORMATION
  Report Type: 
  Country: None (occurrence: None)
  Receive Date: 20110715
  Receipt Date: 20110714
  Transmission Date: 20111222
  Serious: Yes (Other)
  Sender: FDA-Public Use
  Company Number: US-PFIZER INC-2011159905

PATIENT
  Sex: Female
  Weight: 59 kg

DRUGS (8)
  1. CYMBALTA [Concomitant]
     Indication: DEPRESSION
     Dosage: 60 MG, DAILY
  2. NEURONTIN [Suspect]
     Indication: NEURALGIA
     Dosage: 300 MG IN THE MORNING AND AT 600 MG IN THE EVENING, 2X/DAY
     Route: 048
     Dates: start: 20110201
  3. KLONOPIN [Concomitant]
     Indication: MYOCLONUS
     Dosage: TWO TO THREE TABLETS AS NEEDED
     Route: 048
  4. CYMBALTA [Concomitant]
     Indication: MYALGIA
  5. NIASPAN [Concomitant]
     Indication: HYPERCHOLESTEROLAEMIA
     Dosage: TWO TABLETS DAILY AT NIGHT
     Route: 048
  6. METHADONE [Concomitant]
     Indication: NEURALGIA
     Dosage: 10 MG, 2X/DAY
  7. PROMETHAZINE [Concomitant]
     Indication: NAUSEA
     Dosage: 25 MG, AS NEEDED IN EVERY EIGHT HOURS
  8. NORCO [Concomitant]
     Indication: NEURALGIA
     Dosage: 7.5/325 MG, 3X/DAY

REACTIONS (3)
  - CONFUSIONAL STATE [None]
  - MEMORY IMPAIRMENT [None]
  - THINKING ABNORMAL [None]
